FAERS Safety Report 24992590 (Version 3)
Quarter: 2025Q2

REPORT INFORMATION
  Report Type: Spontaneous
  Country: JP (occurrence: JP)
  Receive Date: 20250221
  Receipt Date: 20250506
  Transmission Date: 20250717
  Serious: Yes (Life-Threatening, Hospitalization, Other)
  Sender: MERCK SHARP & DOHME LLC
  Company Number: JP-MSD-M2022-46142

PATIENT
  Age: 72 Year
  Sex: Female

DRUGS (7)
  1. KEYTRUDA [Suspect]
     Active Substance: PEMBROLIZUMAB
     Indication: Uterine cancer
     Dosage: IV DRIP
     Route: 042
     Dates: start: 20220513, end: 20230106
  2. KEYTRUDA [Suspect]
     Active Substance: PEMBROLIZUMAB
     Indication: Uterine cancer
     Dosage: IV DRIP
     Route: 042
     Dates: start: 2023, end: 20250210
  3. LENVATINIB MESYLATE [Suspect]
     Active Substance: LENVATINIB MESYLATE
     Indication: Uterine cancer
     Dosage: DOSE DESCRIPTION : 10 MILLIGRAM, QD?DAILY DOSE : 10 MILLIGRAM?REGIMEN DOSE : 290  MILLIGRAM
     Route: 048
     Dates: start: 20220513, end: 20220610
  4. LENVATINIB MESYLATE [Suspect]
     Active Substance: LENVATINIB MESYLATE
     Indication: Uterine cancer
     Dosage: DOSE DESCRIPTION : 14 MILLIGRAM
     Route: 048
     Dates: start: 20220624, end: 20220722
  5. LENVATINIB MESYLATE [Suspect]
     Active Substance: LENVATINIB MESYLATE
     Indication: Uterine cancer
     Dosage: DOSE DESCRIPTION : 10 MILLIGRAM
     Route: 048
     Dates: start: 20220907, end: 20221103
  6. LENVATINIB MESYLATE [Suspect]
     Active Substance: LENVATINIB MESYLATE
     Indication: Uterine cancer
     Dosage: DOSE DESCRIPTION : 8 MILLIGRAM
     Route: 048
     Dates: start: 20221104, end: 20221202
  7. LENVATINIB MESYLATE [Suspect]
     Active Substance: LENVATINIB MESYLATE
     Indication: Uterine cancer
     Dosage: DOSE DESCRIPTION : 4 MILLIGRAM
     Route: 048
     Dates: start: 20230106, end: 20250210

REACTIONS (5)
  - Malignant neoplasm progression [Unknown]
  - Type 1 diabetes mellitus [Recovering/Resolving]
  - Platelet count decreased [Recovered/Resolved]
  - Erythema [Unknown]
  - Off label use [Unknown]

NARRATIVE: CASE EVENT DATE: 20220513
